FAERS Safety Report 7979397-1 (Version None)
Quarter: 2011Q4

REPORT INFORMATION
  Report Type: 
  Country: None (occurrence: None)
  Receive Date: 20111213
  Receipt Date: 20111213
  Transmission Date: 20120403
  Serious: Yes (Hospitalization)
  Sender: FDA-Public Use
  Company Number: None

PATIENT
  Age: 60 Year
  Sex: Male
  Weight: 120 kg

DRUGS (2)
  1. TERAZOSIN HCL [Suspect]
     Indication: HYPERTENSION
     Dosage: 2 MG EVERY DAY PO
     Route: 048
     Dates: start: 20110419, end: 20110904
  2. TERAZOSIN HCL [Suspect]
     Indication: BENIGN PROSTATIC HYPERPLASIA
     Dosage: 2 MG EVERY DAY PO
     Route: 048
     Dates: start: 20110419, end: 20110904

REACTIONS (4)
  - SYNCOPE [None]
  - BRADYCARDIA [None]
  - ORTHOSTATIC HYPOTENSION [None]
  - HYPOTENSION [None]
